FAERS Safety Report 25679656 (Version 1)
Quarter: 2025Q3

REPORT INFORMATION
  Report Type: Spontaneous
  Country: US (occurrence: US)
  Receive Date: 20250814
  Receipt Date: 20250814
  Transmission Date: 20251021
  Serious: No
  Sender: Unknown Manufacturer
  Company Number: US-MTPC-MTPA2025-0014423

PATIENT
  Sex: Female

DRUGS (2)
  1. RADICAVA ORS [Suspect]
     Active Substance: EDARAVONE
     Indication: Product used for unknown indication
  2. RADICAVA ORS [Suspect]
     Active Substance: EDARAVONE
     Indication: Product used for unknown indication

REACTIONS (3)
  - Taste disorder [Unknown]
  - Foreign body in throat [Unknown]
  - Cough [Recovered/Resolved]
